FAERS Safety Report 5852390-0 (Version None)
Quarter: 2008Q3

REPORT INFORMATION
  Report Type: 
  Country: None (occurrence: None)
  Receive Date: 20080821
  Receipt Date: 20080812
  Transmission Date: 20090109
  Serious: Yes (Other)
  Sender: FDA-Public Use
  Company Number: US-BAYER-200830641NA

PATIENT
  Age: 32 Year
  Sex: Female

DRUGS (4)
  1. YASMIN [Suspect]
     Indication: DRUG USE FOR UNKNOWN INDICATION
     Route: 048
     Dates: start: 20070101
  2. YASMIN [Interacting]
     Route: 048
     Dates: start: 20080701
  3. LAMOTRIGINE [Interacting]
     Indication: CONVULSION
     Dosage: UNIT DOSE: 100 MG
     Route: 048
     Dates: start: 20040101
  4. LAMOTRIGINE [Interacting]
     Dosage: UNIT DOSE: 25 MG

REACTIONS (2)
  - AMNESIA [None]
  - PETIT MAL EPILEPSY [None]
